FAERS Safety Report 12810326 (Version 1)
Quarter: 2016Q4

REPORT INFORMATION
  Report Type: Report from Study
  Country: US (occurrence: US)
  Receive Date: 20161005
  Receipt Date: 20161005
  Transmission Date: 20170207
  Serious: Yes (Hospitalization, Other)
  Sender: FDA-Public Use
  Company Number: US-ROCHE-1495987

PATIENT
  Age: 58 Year
  Sex: Female
  Weight: 104.3 kg

DRUGS (7)
  1. BEVACIZUMAB [Suspect]
     Active Substance: BEVACIZUMAB
     Indication: OVARIAN EPITHELIAL CANCER
     Dosage: OVER 30-90 MINS. ON DAY 1, LAST ADMINISTERED DATE : 19/JUN/2014
     Route: 042
     Dates: start: 20140508
  2. MEROPENEM. [Concomitant]
     Active Substance: MEROPENEM
     Route: 042
  3. CISPLATIN. [Suspect]
     Active Substance: CISPLATIN
     Indication: OVARIAN EPITHELIAL CANCER
     Dosage: DAY 1 OR 2, LAST ADMINISTERED DATE : 19/JUN/2014.
     Route: 033
     Dates: start: 20140508
  4. PACLITAXEL. [Suspect]
     Active Substance: PACLITAXEL
     Indication: OVARIAN EPITHELIAL CANCER
     Dosage: LAST ADMINISTERED DATE : 26/JUN/2014.
     Route: 042
  5. VELIPARIB [Suspect]
     Active Substance: VELIPARIB
     Indication: OVARIAN EPITHELIAL CANCER
     Dosage: DAYS 1-21 ,LAST ADMINISTERED DATE : 09/JUL/2014.
     Route: 048
     Dates: start: 20140508
  6. LEVAQUIN [Concomitant]
     Active Substance: LEVOFLOXACIN
     Indication: URINARY TRACT INFECTION
     Route: 048
  7. PACLITAXEL. [Suspect]
     Active Substance: PACLITAXEL
     Dosage: ON DAY 8
     Route: 033

REACTIONS (14)
  - Syncope [Recovered/Resolved]
  - Hypomagnesaemia [Recovered/Resolved]
  - Hypokalaemia [Recovered/Resolved]
  - Neutrophil count decreased [Unknown]
  - White blood cell count decreased [Recovered/Resolved]
  - Fatigue [Recovered/Resolved]
  - Sinus tachycardia [Recovered/Resolved]
  - Hypokalaemia [Unknown]
  - Fatigue [Unknown]
  - White blood cell count decreased [Unknown]
  - Infusion related reaction [Unknown]
  - Neutrophil count decreased [Recovered/Resolved]
  - Nausea [Unknown]
  - Anaemia [Unknown]

NARRATIVE: CASE EVENT DATE: 20140619
